FAERS Safety Report 11698619 (Version 1)
Quarter: 2015Q4

REPORT INFORMATION
  Report Type: Spontaneous
  Country: US (occurrence: US)
  Receive Date: 20151104
  Receipt Date: 20151104
  Transmission Date: 20160304
  Serious: Yes (Other)
  Sender: FDA-Public Use
  Company Number: US-FRI-1000080469

PATIENT
  Sex: Female

DRUGS (7)
  1. IMITREX [Suspect]
     Active Substance: SUMATRIPTAN\SUMATRIPTAN SUCCINATE
  2. INDERAL [Suspect]
     Active Substance: PROPRANOLOL HYDROCHLORIDE
  3. TOPAMAX [Suspect]
     Active Substance: TOPIRAMATE
  4. CELEXA [Suspect]
     Active Substance: CITALOPRAM HYDROBROMIDE
  5. CLONAZEPAM. [Suspect]
     Active Substance: CLONAZEPAM
  6. KEPPRA [Suspect]
     Active Substance: LEVETIRACETAM
  7. ZONEGRAN [Suspect]
     Active Substance: ZONISAMIDE

REACTIONS (1)
  - Partial seizures [Not Recovered/Not Resolved]
